FAERS Safety Report 10099027 (Version 1)
Quarter: 2014Q2

REPORT INFORMATION
  Report Type: Spontaneous
  Country: DE (occurrence: DE)
  Receive Date: 20140423
  Receipt Date: 20140423
  Transmission Date: 20141212
  Serious: Yes (Hospitalization, Other)
  Sender: FDA-Public Use
  Company Number: DE-UCBSA-118935

PATIENT
  Sex: Male

DRUGS (4)
  1. VIMPAT [Suspect]
     Dosage: UP-TITRATED TO 600MG
  2. VIMPAT [Suspect]
     Dosage: UNKNOWN DOSE
  3. HYDROCHLOROTHIAZIDE [Concomitant]
     Dosage: UNKNOWN DOSE
  4. HYDROCHLOROTHIAZIDE [Concomitant]

REACTIONS (4)
  - Investigation [Unknown]
  - Hyponatraemia [Unknown]
  - Polydipsia [Unknown]
  - Overdose [Unknown]
